FAERS Safety Report 24320912 (Version 3)
Quarter: 2024Q4

REPORT INFORMATION
  Report Type: Report from Study
  Country: US (occurrence: US)
  Receive Date: 20240915
  Receipt Date: 20241112
  Transmission Date: 20250115
  Serious: No
  Sender: SUNOVION
  Company Number: US-SUMITOMO PHARMA SWITZERLAND GMBH-2024SPA002081

PATIENT

DRUGS (3)
  1. ORGOVYX [Suspect]
     Active Substance: RELUGOLIX
     Indication: Prostate cancer
     Dosage: 360 MG
     Route: 048
     Dates: start: 20230203, end: 20230203
  2. ORGOVYX [Suspect]
     Active Substance: RELUGOLIX
     Dosage: 120 MG, QD
     Route: 048
     Dates: start: 20230204
  3. ERLEADA [Suspect]
     Active Substance: APALUTAMIDE
     Dosage: UNK
     Route: 065

REACTIONS (4)
  - Increased appetite [Recovered/Resolved]
  - Blood iron decreased [Unknown]
  - Somnolence [Unknown]
  - Product dose omission issue [Unknown]
